FAERS Safety Report 10167442 (Version 1)
Quarter: 2014Q2

REPORT INFORMATION
  Report Type: Spontaneous
  Country: AT (occurrence: AT)
  Receive Date: 20140512
  Receipt Date: 20140512
  Transmission Date: 20141212
  Serious: Yes (Other)
  Sender: FDA-Public Use
  Company Number: AT-CELGENEUS-009-POMAL-14045869

PATIENT
  Sex: 0

DRUGS (2)
  1. IMNOVID [Suspect]
     Indication: PLASMA CELL MYELOMA
     Route: 048
  2. GRANULOCYTE COLONY-STIMULATING FACTOR NOS [Concomitant]
     Indication: PLASMA CELL MYELOMA
     Route: 065

REACTIONS (1)
  - Pancytopenia [Unknown]
